FAERS Safety Report 8168436-3 (Version None)
Quarter: 2012Q1

REPORT INFORMATION
  Report Type: 
  Country: None (occurrence: None)
  Receive Date: 20120227
  Receipt Date: 20120217
  Transmission Date: 20120608
  Serious: Yes (Hospitalization)
  Sender: FDA-Public Use
  Company Number: ES-NOVOPROD-329358

PATIENT
  Age: 67 Year
  Sex: Male
  Weight: 68.5 kg

DRUGS (17)
  1. GLICLAZIDA [Concomitant]
     Indication: DIABETES MELLITUS
     Dosage: 90 MG, QD
     Dates: start: 20100419
  2. TORSEMIDE [Concomitant]
     Indication: HYPERTENSION
     Dosage: 5 MG, UNK
     Dates: start: 20080903
  3. LEVOTIROXINA [Concomitant]
     Indication: HYPOTHYROIDISM
     Dosage: 100 UG, QD
     Dates: start: 20090525
  4. CALCIUM POLYSTYRENE SULFONATE [Concomitant]
     Indication: OSTEOPENIA
     Dosage: 30 G, QD
     Dates: start: 20090907
  5. IRBESARTAN [Concomitant]
     Dosage: 300 MG, QD
     Dates: start: 20080903
  6. DILTIAZEM HCL [Concomitant]
     Dosage: 240 MG, QD
     Dates: start: 20080902
  7. LIRAGLUTIDE FLEXPEN [Suspect]
     Indication: TYPE 2 DIABETES MELLITUS
     Dosage: 1.8 MG, QD
     Route: 058
     Dates: start: 20110322, end: 20110603
  8. ACID ACETYLSALICYLIC [Concomitant]
     Indication: PROPHYLAXIS
     Dosage: 100 MG, QD
     Dates: start: 20090212
  9. CLOPIDOGREL BISULFATE [Concomitant]
     Indication: DUODENAL ULCER
     Dosage: 75 MG, UNK
     Dates: start: 20110629
  10. OMEPRAZOLE [Concomitant]
     Indication: DUODENAL ULCER
     Dosage: 20 MG, QD
     Dates: start: 20110629
  11. LIRAGLUTIDE FLEXPEN [Suspect]
     Dosage: 1.8 MG, QD
     Route: 058
     Dates: start: 20110920
  12. PRAVASTATINA [Concomitant]
     Indication: DYSLIPIDAEMIA
     Dosage: 40.0 UNK, UNK
     Dates: start: 20080828
  13. LANTUS [Concomitant]
     Indication: DIABETES MELLITUS
     Dosage: 14 IU, QD
     Dates: start: 20110421
  14. CALCIFEDIOL [Concomitant]
     Indication: OSTEOPENIA
     Dosage: 0.2 MG, QD
     Dates: start: 20101213
  15. CYANOCOBALAMIN [Concomitant]
     Indication: VITAMIN B12 DEFICIENCY
     Dosage: 2 UG, QD
     Dates: start: 20080903
  16. DIOSMINE [Concomitant]
     Indication: VENOUS INSUFFICIENCY
     Dosage: 400 MG, QD
     Dates: start: 20080902
  17. FOLIC ACID [Concomitant]
     Indication: ANAEMIA
     Dosage: 400 UG, QD
     Dates: start: 20080903

REACTIONS (2)
  - SIGMOIDITIS [None]
  - NAUSEA [None]
